FAERS Safety Report 19935367 (Version 1)
Quarter: 2021Q4

REPORT INFORMATION
  Report Type: Spontaneous
  Country: JP (occurrence: JP)
  Receive Date: 20211008
  Receipt Date: 20211008
  Transmission Date: 20220303
  Serious: Yes (Hospitalization, Other)
  Sender: FDA-Public Use
  Company Number: JP-GILEAD-2021-0551427

PATIENT
  Age: 78 Year
  Sex: Female
  Weight: 55.4 kg

DRUGS (2)
  1. HARVONI [Suspect]
     Active Substance: LEDIPASVIR\SOFOSBUVIR
     Indication: Hepatitis C
     Dosage: UNK
     Route: 048
  2. HARVONI [Suspect]
     Active Substance: LEDIPASVIR\SOFOSBUVIR
     Indication: Hepatic cirrhosis

REACTIONS (9)
  - Hepatocellular carcinoma [Unknown]
  - Hepatocellular carcinoma [Unknown]
  - Hepatocellular carcinoma [Unknown]
  - Hepatocellular carcinoma [Unknown]
  - Pancytopenia [Unknown]
  - Atrial fibrillation [Unknown]
  - Blood bilirubin increased [Unknown]
  - Blood albumin decreased [Unknown]
  - Prothrombin time prolonged [Unknown]
